FAERS Safety Report 9412121 (Version 1)
Quarter: 2013Q4

REPORT INFORMATION
  Report Type: Spontaneous
  Country: US (occurrence: None)
  Receive Date: 20130719
  Receipt Date: 20130719
  Transmission Date: 20140711
  Serious: Yes (Other)
  Sender: FDA-Public Use
  Company Number: None

PATIENT
  Age: 74 Year
  Sex: Male

DRUGS (1)
  1. NODOZ [Suspect]
     Indication: SOMNOLENCE
     Route: 048
     Dates: start: 1987

REACTIONS (3)
  - Myocardial infarction [None]
  - Pneumonia [None]
  - Stress [None]
